FAERS Safety Report 21667404 (Version 1)
Quarter: 2022Q4

REPORT INFORMATION
  Report Type: Spontaneous
  Country: JP (occurrence: JP)
  Receive Date: 20221201
  Receipt Date: 20221201
  Transmission Date: 20230112
  Serious: Yes (Other)
  Sender: FDA-Public Use
  Company Number: JP-ASTELLAS-2022JP017633

PATIENT
  Age: 8 Decade
  Sex: Male

DRUGS (2)
  1. PADCEV [Suspect]
     Active Substance: ENFORTUMAB VEDOTIN-EJFV
     Indication: Transitional cell carcinoma
     Route: 041
     Dates: start: 20221014, end: 20221021
  2. LOXOPROFEN SODIUM [Suspect]
     Active Substance: LOXOPROFEN SODIUM
     Indication: Product used for unknown indication
     Dosage: UNK UNK, UNKNOWN FREQ.
     Route: 048

REACTIONS (2)
  - Gastric ulcer haemorrhage [Not Recovered/Not Resolved]
  - Blood loss anaemia [Not Recovered/Not Resolved]

NARRATIVE: CASE EVENT DATE: 20221021
